FAERS Safety Report 12802544 (Version 1)
Quarter: 2016Q4

REPORT INFORMATION
  Report Type: Report from Study
  Country: US (occurrence: US)
  Receive Date: 20161003
  Receipt Date: 20161003
  Transmission Date: 20170207
  Serious: Yes (Hospitalization, Other)
  Sender: FDA-Public Use
  Company Number: US-ROCHE-1083118

PATIENT
  Age: 70 Year
  Sex: Male
  Weight: 74.63 kg

DRUGS (25)
  1. BEVACIZUMAB [Suspect]
     Active Substance: BEVACIZUMAB
     Route: 042
     Dates: start: 20110513
  2. TORISEL [Suspect]
     Active Substance: TEMSIROLIMUS
     Indication: CARCINOID TUMOUR
     Dosage: ON DAY 1, 8, 15 AND 22. LAST TREATMENT DATE WAS ON 25/JAN/2012. DRUG DISCONTINUED ON 26/JUL/2012
     Route: 042
     Dates: start: 20110223
  3. TORISEL [Suspect]
     Active Substance: TEMSIROLIMUS
     Route: 042
     Dates: start: 20111102
  4. TORISEL [Suspect]
     Active Substance: TEMSIROLIMUS
     Route: 042
     Dates: start: 20110615
  5. BEVACIZUMAB [Suspect]
     Active Substance: BEVACIZUMAB
     Route: 042
     Dates: start: 20110615
  6. TORISEL [Suspect]
     Active Substance: TEMSIROLIMUS
     Route: 042
     Dates: start: 20110420
  7. TORISEL [Suspect]
     Active Substance: TEMSIROLIMUS
     Route: 042
     Dates: start: 20110907
  8. BEVACIZUMAB [Suspect]
     Active Substance: BEVACIZUMAB
     Indication: CARCINOID TUMOUR
     Dosage: OVER 30-90 MIN ON DAY 1 AND 15. LAST TREATMENT DATE WAS ON 25/JAN/2012. DRUG DISCONTINUED ON 26/JUL/
     Route: 042
     Dates: start: 20110223
  9. BEVACIZUMAB [Suspect]
     Active Substance: BEVACIZUMAB
     Indication: MALIGNANT NEOPLASM OF ISLETS OF LANGERHANS
     Route: 042
     Dates: start: 20110323
  10. BEVACIZUMAB [Suspect]
     Active Substance: BEVACIZUMAB
     Route: 042
     Dates: start: 20110420
  11. TORISEL [Suspect]
     Active Substance: TEMSIROLIMUS
     Route: 042
     Dates: start: 20110810
  12. PLAVIX [Concomitant]
     Active Substance: CLOPIDOGREL BISULFATE
  13. TORISEL [Suspect]
     Active Substance: TEMSIROLIMUS
     Indication: MALIGNANT NEOPLASM OF ISLETS OF LANGERHANS
     Dosage: LAST DOSE ADMINISTERED ON 25/JAN/2012
     Route: 042
     Dates: start: 20110323
  14. TORISEL [Suspect]
     Active Substance: TEMSIROLIMUS
     Route: 042
     Dates: start: 20111207
  15. AMLODIPINE [Concomitant]
     Active Substance: AMLODIPINE BESYLATE
  16. TORISEL [Suspect]
     Active Substance: TEMSIROLIMUS
     Route: 042
     Dates: start: 20110513
  17. ATENOLOL. [Concomitant]
     Active Substance: ATENOLOL
  18. LOSARTAN. [Concomitant]
     Active Substance: LOSARTAN
  19. BEVACIZUMAB [Suspect]
     Active Substance: BEVACIZUMAB
     Route: 042
     Dates: start: 20110518
  20. BEVACIZUMAB [Suspect]
     Active Substance: BEVACIZUMAB
     Route: 042
     Dates: start: 20110810
  21. TORISEL [Suspect]
     Active Substance: TEMSIROLIMUS
     Route: 042
     Dates: start: 20120104
  22. TORISEL [Suspect]
     Active Substance: TEMSIROLIMUS
     Route: 042
     Dates: start: 20110518
  23. TORISEL [Suspect]
     Active Substance: TEMSIROLIMUS
     Route: 042
     Dates: start: 20111005
  24. NOVOLIN 70/30 [Concomitant]
     Active Substance: INSULIN HUMAN
  25. LASIX [Concomitant]
     Active Substance: FUROSEMIDE

REACTIONS (6)
  - Lymphocyte count decreased [Unknown]
  - Lung infection [Recovered/Resolved with Sequelae]
  - Lung infection [Recovered/Resolved]
  - Lung infection [Unknown]
  - Blood cholesterol increased [Unknown]
  - Hyperglycaemia [Unknown]

NARRATIVE: CASE EVENT DATE: 20110525
